FAERS Safety Report 7635704-0 (Version None)
Quarter: 2011Q3

REPORT INFORMATION
  Report Type: 
  Country: None (occurrence: None)
  Receive Date: 20110719
  Receipt Date: 20110711
  Transmission Date: 20111222
  Serious: Yes (Hospitalization, Other)
  Sender: FDA-Public Use
  Company Number: 2010SP019823

PATIENT
  Age: 30 Year
  Sex: Female
  Weight: 92.5338 kg

DRUGS (6)
  1. ACETAMINOPHEN [Concomitant]
  2. NUVARING [Suspect]
     Indication: MENORRHAGIA
     Dates: start: 20071126, end: 20080330
  3. NUVARING [Suspect]
     Indication: CONTRACEPTION
     Dates: start: 20071126, end: 20080330
  4. MULTI-VITAMINS [Concomitant]
  5. LEVOXYL [Concomitant]
  6. DIPHENOXYLATE [Concomitant]

REACTIONS (45)
  - ASTHENIA [None]
  - TOXICITY TO VARIOUS AGENTS [None]
  - COAGULOPATHY [None]
  - MAMMARY DUCT ECTASIA [None]
  - BREAST PAIN [None]
  - ANXIETY [None]
  - MUSCULOSKELETAL PAIN [None]
  - MENSTRUAL DISORDER [None]
  - PAIN IN EXTREMITY [None]
  - BLOODY DISCHARGE [None]
  - OVARIAN CYST [None]
  - PELVIC INFLAMMATORY DISEASE [None]
  - DIZZINESS [None]
  - MULTIPLE INJURIES [None]
  - FIBROMYALGIA [None]
  - CARDIAC VENTRICULAR DISORDER [None]
  - DERMATITIS ALLERGIC [None]
  - MUSCLE SPASMS [None]
  - DYSPNOEA [None]
  - ELECTROCARDIOGRAM POOR R-WAVE PROGRESSION [None]
  - PULMONARY HYPERTENSION [None]
  - HEPATITIS [None]
  - INADEQUATE ANALGESIA [None]
  - VAGINITIS BACTERIAL [None]
  - VOMITING [None]
  - VERTIGO [None]
  - DEHYDRATION [None]
  - BREAST DISCHARGE [None]
  - MIGRAINE [None]
  - CONSTIPATION [None]
  - MENORRHAGIA [None]
  - HYPOTHYROIDISM [None]
  - PELVIC PAIN [None]
  - INTERNATIONAL NORMALISED RATIO INCREASED [None]
  - CYSTITIS INTERSTITIAL [None]
  - LOW DENSITY LIPOPROTEIN INCREASED [None]
  - NAUSEA [None]
  - PULMONARY EMBOLISM [None]
  - ABDOMINAL PAIN [None]
  - BLOOD CHOLESTEROL INCREASED [None]
  - DIARRHOEA [None]
  - TREATMENT NONCOMPLIANCE [None]
  - FIBRIN D DIMER INCREASED [None]
  - DIARRHOEA HAEMORRHAGIC [None]
  - CLOSTRIDIUM DIFFICILE COLITIS [None]
